FAERS Safety Report 13367167 (Version 1)
Quarter: 2017Q1

REPORT INFORMATION
  Report Type: Spontaneous
  Country: FR (occurrence: FR)
  Receive Date: 20170324
  Receipt Date: 20170324
  Transmission Date: 20170429
  Serious: Yes (Life-Threatening, Other)
  Sender: FDA-Public Use
  Company Number: FR-BAXTER-2017BAX011761

PATIENT
  Age: 79 Year
  Sex: Female

DRUGS (8)
  1. CORTANCYL [Suspect]
     Active Substance: PREDNISONE
     Indication: VASCULITIS
     Dosage: DAILY IN THE MORNING
     Route: 048
     Dates: start: 20170209
  2. XARELTO [Suspect]
     Active Substance: RIVAROXABAN
     Indication: PRODUCT USED FOR UNKNOWN INDICATION
     Route: 065
     Dates: end: 20170206
  3. LASILIX [Concomitant]
     Active Substance: FUROSEMIDE
     Indication: PRODUCT USED FOR UNKNOWN INDICATION
     Dosage: SCORED TABLET, ONCE IN THE MORNING
     Route: 048
  4. CORDARONE [Suspect]
     Active Substance: AMIODARONE HYDROCHLORIDE
     Indication: ATRIAL FIBRILLATION
     Dosage: SCORED TABLET, DAILY IN THE MORNING
     Route: 048
     Dates: start: 20170206, end: 20170211
  5. LOVENOX [Suspect]
     Active Substance: ENOXAPARIN SODIUM
     Indication: PRODUCT USED FOR UNKNOWN INDICATION
     Dosage: TWICW DAILY ONE IN MORNING AND ONE IN EVENING
     Route: 058
     Dates: start: 20170206
  6. EUPANTOL [Concomitant]
     Active Substance: PANTOPRAZOLE SODIUM
     Indication: PRODUCT USED FOR UNKNOWN INDICATION
     Dosage: ENTERIC COATED TABLET, ONCE DAILY IN THE MORNING
     Route: 048
  7. ENDOXAN 1000 MG, POUDRE POUR SOLUTION INJECTABLE [Suspect]
     Active Substance: CYCLOPHOSPHAMIDE
     Indication: VASCULITIS
     Dosage: IN ONE HOUR
     Route: 042
     Dates: start: 20170209
  8. BISOPROLOL [Suspect]
     Active Substance: BISOPROLOL
     Indication: ATRIAL FIBRILLATION
     Route: 065
     Dates: start: 20170209

REACTIONS (4)
  - Pulmonary oedema [Recovered/Resolved]
  - Circulatory collapse [Unknown]
  - Atrial fibrillation [Not Recovered/Not Resolved]
  - Hypertension [Unknown]

NARRATIVE: CASE EVENT DATE: 20170210
